FAERS Safety Report 4408185-8 (Version None)
Quarter: 2004Q3

REPORT INFORMATION
  Report Type: 
  Country: None (occurrence: None)
  Receive Date: 20040722
  Receipt Date: 20040402
  Transmission Date: 20050211
  Serious: Yes (Other)
  Sender: FDA-Public Use
  Company Number: GB-JNJFOC-20040400376

PATIENT
  Age: 25 Year
  Sex: Female

DRUGS (8)
  1. REMICADE [Suspect]
     Indication: RHEUMATOID ARTHRITIS
     Dosage: 200 MG, INTRAVENOUS
     Route: 042
     Dates: start: 20020809, end: 20031010
  2. METHOTREXATE [Concomitant]
  3. AMITRIPTYLINE HCL [Concomitant]
  4. CELEBREX [Concomitant]
  5. ADCAL-D3 (LEKOVIT CA) [Concomitant]
  6. FOLIC ACID [Concomitant]
  7. DIHYROCODEINE (DIHYDROCODEINE) [Concomitant]
  8. ALENDRONAT SODIUM (ALENDRONATE SODIUM) [Concomitant]

REACTIONS (5)
  - FLUSHING [None]
  - HYPERTENSION [None]
  - NAUSEA [None]
  - TACHYCARDIA [None]
  - VOMITING [None]
